FAERS Safety Report 5003840-3 (Version None)
Quarter: 2006Q2

REPORT INFORMATION
  Report Type: 
  Country: None (occurrence: None)
  Receive Date: 20060515
  Receipt Date: 20060502
  Transmission Date: 20061013
  Serious: Yes (Hospitalization)
  Sender: FDA-Public Use
  Company Number: 200610426BFR

PATIENT
  Age: 37 Year
  Sex: Male

DRUGS (15)
  1. CIPROFLOXACIN HCL [Suspect]
     Indication: OSTEITIS
     Dosage: 400 MG, QD, INTRAVENOUS
     Route: 042
     Dates: start: 20060306, end: 20060412
  2. PIPERACILLINE (PIPERACILLIN) [Suspect]
     Indication: OSTEITIS
     Dosage: 2 G, QID, INTRAVENOUS
     Route: 042
     Dates: start: 20060307, end: 20060412
  3. INSULIN [Concomitant]
  4. NEORECORMON ^ROCHE^ [Concomitant]
  5. SOLUPRED [Concomitant]
  6. FONZYLANE [Concomitant]
  7. MOPRAL [Concomitant]
  8. TAREG [Concomitant]
  9. NEORAL [Concomitant]
  10. IMUREL [Concomitant]
  11. LASILIX [Concomitant]
  12. LOXEN [Concomitant]
  13. MEDIATENSYL [Concomitant]
  14. AUGMENTIN '125' [Concomitant]
  15. TAVANIC [Concomitant]

REACTIONS (4)
  - HYPERKERATOSIS [None]
  - PRURITUS GENERALISED [None]
  - RASH MACULO-PAPULAR [None]
  - SKIN EXFOLIATION [None]
